FAERS Safety Report 9068576 (Version 1)
Quarter: 2013Q1

REPORT INFORMATION
  Report Type: Spontaneous
  Country: US (occurrence: None)
  Receive Date: 20130212
  Receipt Date: 20130212
  Transmission Date: 20140127
  Serious: Yes (Hospitalization)
  Sender: FDA-Public Use
  Company Number: None

PATIENT
  Age: 92 Year
  Sex: Female
  Weight: 83.92 kg

DRUGS (1)
  1. LIALDA [Suspect]
     Indication: DIARRHOEA
     Dosage: 2 TABLETS DAILY
     Dates: start: 20130104, end: 20130125

REACTIONS (5)
  - Fluid retention [None]
  - Asthenia [None]
  - Tremor [None]
  - Dizziness [None]
  - Dehydration [None]
